FAERS Safety Report 23821621 (Version 1)
Quarter: 2024Q2

REPORT INFORMATION
  Report Type: Spontaneous
  Country: US (occurrence: US)
  Receive Date: 20240506
  Receipt Date: 20240506
  Transmission Date: 20240715
  Serious: Yes (Other)
  Sender: FDA-Public Use
  Company Number: US-GLAXOSMITHKLINE-US2024055296

PATIENT
  Sex: Female

DRUGS (1)
  1. ZEJULA [Suspect]
     Active Substance: NIRAPARIB
     Indication: Neoplasm malignant
     Dosage: UNK
     Dates: start: 20240229, end: 20240430

REACTIONS (3)
  - Anaemia [Recovering/Resolving]
  - Haemoglobin decreased [Unknown]
  - Product use in unapproved indication [Unknown]
